FAERS Safety Report 10775859 (Version 1)
Quarter: 2015Q1

REPORT INFORMATION
  Report Type: Spontaneous
  Country: US (occurrence: US)
  Receive Date: 20150209
  Receipt Date: 20150209
  Transmission Date: 20150721
  Serious: No
  Sender: FDA-Public Use
  Company Number: US-GLAXOSMITHKLINE-A1060070A

PATIENT

DRUGS (2)
  1. SUMATRIPTAN SUCCINATE SOLUTION FOR INJECTION IN PRE-FILLED PEN [Suspect]
     Active Substance: SUMATRIPTAN SUCCINATE
     Indication: PRODUCT USED FOR UNKNOWN INDICATION
     Dosage: 4 MG INJECTION SOMETIMES 6 MG
     Route: 058
  2. SUMATRIPTAN SUCCINATE SOLUTION FOR INJECTION IN PRE-FILLED PEN [Suspect]
     Active Substance: SUMATRIPTAN SUCCINATE

REACTIONS (3)
  - Product quality issue [Unknown]
  - Needle issue [Unknown]
  - Injection site bruising [Unknown]
